FAERS Safety Report 8485546-1 (Version None)
Quarter: 2012Q2

REPORT INFORMATION
  Report Type: 
  Country: None (occurrence: None)
  Receive Date: 20120627
  Receipt Date: 20120627
  Transmission Date: 20120825
  Serious: No
  Sender: FDA-Public Use
  Company Number: None

PATIENT
  Sex: Male

DRUGS (1)
  1. AQUAPHOR [Suspect]
     Indication: TATTOO
     Dosage: 2 TIMES A DAY TRANSDERMAL
     Route: 062

REACTIONS (4)
  - SKIN DISORDER [None]
  - PRURITUS [None]
  - ERYTHEMA [None]
  - ACNE [None]
